FAERS Safety Report 9806062 (Version 3)
Quarter: 2014Q2

REPORT INFORMATION
  Report Type: Spontaneous
  Country: US (occurrence: US)
  Receive Date: 20140109
  Receipt Date: 20140407
  Transmission Date: 20141212
  Serious: Yes (Death, Other)
  Sender: FDA-Public Use
  Company Number: US-SA-POMP-1002919

PATIENT
  Age: 36 Year
  Sex: Male

DRUGS (9)
  1. LUMIZYME [Suspect]
     Indication: GLYCOGEN STORAGE DISEASE TYPE II
     Dosage: 1300 U, Q2W
     Route: 042
     Dates: start: 20100831, end: 20130326
  2. LUMIZYME [Suspect]
     Indication: GLYCOGEN STORAGE DISEASE TYPE II
     Route: 042
     Dates: start: 20060901
  3. LUMIZYME [Suspect]
     Indication: GLYCOGEN STORAGE DISEASE TYPE II
     Route: 042
     Dates: start: 20130326
  4. LUMIZYME [Suspect]
     Indication: GLYCOGEN STORAGE DISEASE TYPE II
     Dosage: DOSE:1300 UNIT(S)
     Route: 042
     Dates: start: 20060928
  5. LUMIZYME [Suspect]
     Indication: GLYCOGEN STORAGE DISEASE TYPE II
     Route: 042
     Dates: end: 20120815
  6. BENADRYL [Concomitant]
     Indication: ABDOMINAL PAIN
     Dates: start: 20120531
  7. DEPAKOTE [Concomitant]
     Indication: HEADACHE
     Dates: start: 20101202
  8. FENTANYL [Concomitant]
     Indication: BACK PAIN
     Dates: start: 201203
  9. EFFEXOR [Concomitant]
     Indication: DEPRESSION
     Dates: start: 201203

REACTIONS (2)
  - Death [Fatal]
  - Malaise [Not Recovered/Not Resolved]
